FAERS Safety Report 19094116 (Version 1)
Quarter: 2021Q2

REPORT INFORMATION
  Report Type: Spontaneous
  Country: US (occurrence: US)
  Receive Date: 20210405
  Receipt Date: 20210405
  Transmission Date: 20210717
  Serious: Yes (Hospitalization, Other)
  Sender: FDA-Public Use
  Company Number: US-SUNOVION-2021SUN001101

PATIENT
  Age: 77 Year
  Sex: Female

DRUGS (1)
  1. BROVANA [Suspect]
     Active Substance: ARFORMOTEROL TARTRATE
     Dosage: 15 ?G
     Route: 055

REACTIONS (3)
  - Haemorrhage [Recovering/Resolving]
  - Arterial thrombosis [Recovering/Resolving]
  - Aneurysm [Recovering/Resolving]
